FAERS Safety Report 15164218 (Version 1)
Quarter: 2018Q3

REPORT INFORMATION
  Report Type: Spontaneous
  Country: US (occurrence: US)
  Receive Date: 20180719
  Receipt Date: 20180719
  Transmission Date: 20181010
  Serious: Yes (Other)
  Sender: FDA-Public Use
  Company Number: US-PFIZER INC-2018287424

PATIENT
  Sex: Male
  Weight: 81.65 kg

DRUGS (1)
  1. VIAGRA [Suspect]
     Active Substance: SILDENAFIL CITRATE
     Indication: ERECTILE DYSFUNCTION
     Dosage: 150 MG, 2X/DAY(150 MG, CAPSULE, TWICE A DAY)
     Route: 048
     Dates: start: 2015

REACTIONS (3)
  - Penile pain [Unknown]
  - Overdose [Unknown]
  - Erection increased [Unknown]

NARRATIVE: CASE EVENT DATE: 2015
